FAERS Safety Report 14141837 (Version 3)
Quarter: 2017Q4

REPORT INFORMATION
  Report Type: Spontaneous
  Country: TW (occurrence: TW)
  Receive Date: 20171030
  Receipt Date: 20171121
  Transmission Date: 20180321
  Serious: Yes (Hospitalization, Other)
  Sender: FDA-Public Use
  Company Number: TW-PFIZER INC-2017463985

PATIENT
  Age: 76 Year
  Sex: Male

DRUGS (3)
  1. XELJANZ [Suspect]
     Active Substance: TOFACITINIB CITRATE
     Indication: RHEUMATOID ARTHRITIS
     Dosage: 5 MG, 2X/DAY (BID)
     Route: 048
     Dates: start: 20170224, end: 2017
  2. ARHEUMA [Concomitant]
     Dosage: 10 MG, 1X/DAY
  3. GENIQUIN [Concomitant]
     Dosage: 200 MG, 1X/DAY

REACTIONS (7)
  - Cholelithiasis [Unknown]
  - Nausea [Recovering/Resolving]
  - Nephropathy [Unknown]
  - Acute kidney injury [Recovering/Resolving]
  - Vomiting [Recovering/Resolving]
  - Loss of consciousness [Unknown]
  - Pyrexia [Recovering/Resolving]

NARRATIVE: CASE EVENT DATE: 201709
